FAERS Safety Report 9192021 (Version 1)
Quarter: 2013Q1

REPORT INFORMATION
  Report Type: Spontaneous
  Country: PR (occurrence: None)
  Receive Date: 20130325
  Receipt Date: 20130325
  Transmission Date: 20140127
  Serious: Yes (Life-Threatening, Hospitalization)
  Sender: FDA-Public Use
  Company Number: VAL_02220_2013

PATIENT
  Age: 71 Year
  Sex: Male

DRUGS (3)
  1. METOPROLOL (METOPROLOL-METOPROLOL TARTRATE) [Suspect]
     Indication: BLOOD PRESSURE ABNORMAL
     Dosage: 1X8 HOURS
     Route: 048
  2. CO-TRIMOXAZOLE [Suspect]
     Dosage: (2 DR 1X/12 HOURS)
     Route: 048
  3. LISINOPRIL (LISINOPRIL) [Suspect]

REACTIONS (2)
  - Hyperkalaemia [None]
  - Haemodialysis [None]
